FAERS Safety Report 6342602-1 (Version None)
Quarter: 2009Q3

REPORT INFORMATION
  Report Type: 
  Country: None (occurrence: None)
  Receive Date: 20090908
  Receipt Date: 20090902
  Transmission Date: 20100115
  Serious: Yes (Other)
  Sender: FDA-Public Use
  Company Number: JP-JNJFOC-20090808813

PATIENT

DRUGS (1)
  1. DUROTEP [Suspect]
     Indication: SMALL INTESTINE CARCINOMA
     Route: 062

REACTIONS (1)
  - ILEUS [None]
